FAERS Safety Report 20388377 (Version 1)
Quarter: 2022Q1

REPORT INFORMATION
  Report Type: Spontaneous
  Country: NL (occurrence: NL)
  Receive Date: 20220128
  Receipt Date: 20220128
  Transmission Date: 20220423
  Serious: Yes (Other)
  Sender: FDA-Public Use
  Company Number: NL-CELLTRION HEALTHCARE HUNGARY KFT-2022NL000300

PATIENT

DRUGS (4)
  1. DOCETAXEL [Suspect]
     Active Substance: DOCETAXEL
     Indication: HER2 positive salivary gland cancer
     Dosage: 75 MILLIGRAM/SQ. METER (75 MG/M2 EVERY 3 WEEKS)
     Route: 065
  2. TRASTUZUMAB [Suspect]
     Active Substance: TRASTUZUMAB
     Indication: HER2 positive salivary gland cancer
     Dosage: UNK (EVERY 3  WEEKS)
     Route: 065
  3. ADO-TRASTUZUMAB EMTANSINE [Suspect]
     Active Substance: ADO-TRASTUZUMAB EMTANSINE
     Indication: HER2 positive salivary gland cancer
     Dosage: 3.6 MILLIGRAM/KILOGRAM (3.6 MG/KG EVERY 3 WEEKS)
     Route: 042
  4. PERTUZUMAB [Suspect]
     Active Substance: PERTUZUMAB
     Indication: HER2 positive salivary gland cancer
     Dosage: UNK (STARTING DOSE OF 840 MG WITH SUBSEQUENT DOSAGES OF 420 MG EVERY 3 WEEKS)
     Route: 042

REACTIONS (4)
  - Disease progression [Unknown]
  - HER2 positive salivary gland cancer [Unknown]
  - Therapy partial responder [Unknown]
  - Off label use [Unknown]
